FAERS Safety Report 9992757 (Version 2)
Quarter: 2014Q1

REPORT INFORMATION
  Report Type: Spontaneous
  Country: US (occurrence: US)
  Receive Date: 20140310
  Receipt Date: 20140326
  Transmission Date: 20141002
  Serious: No
  Sender: FDA-Public Use
  Company Number: US-PFIZER INC-2014067761

PATIENT
  Age: 73 Year
  Sex: Female
  Weight: 81.63 kg

DRUGS (5)
  1. CELEBREX [Suspect]
     Indication: ARTHRITIS
     Dosage: 200 MG (MORNING), 1X/DAY
     Route: 048
     Dates: start: 20140305, end: 20140305
  2. CELEBREX [Suspect]
     Indication: SPONDYLITIS
     Dosage: 200 MG(2O^CLOCK IN THE AFTERNOON), 2X/DAY
     Route: 048
     Dates: start: 20140305
  3. CELEBREX [Suspect]
     Indication: ARTHRITIS
  4. XANAX [Concomitant]
     Indication: ANXIETY
     Dosage: UNK, AS NEEDED
  5. LEVOTHYROXINE [Concomitant]
     Indication: THYROID DISORDER
     Dosage: UNK
     Dates: start: 201402

REACTIONS (2)
  - Pain [Unknown]
  - Drug effect incomplete [Unknown]
